FAERS Safety Report 7277844-4 (Version None)
Quarter: 2011Q1

REPORT INFORMATION
  Report Type: 
  Country: None (occurrence: None)
  Receive Date: 20110207
  Receipt Date: 20110128
  Transmission Date: 20110831
  Serious: Yes (Hospitalization)
  Sender: FDA-Public Use
  Company Number: FR-JNJFOC-20110200463

PATIENT
  Sex: Female

DRUGS (7)
  1. LASIX [Concomitant]
     Route: 065
  2. MEMANTINE HCL [Concomitant]
     Indication: DEMENTIA ALZHEIMER'S TYPE
     Route: 048
  3. REMINYL LP [Suspect]
     Indication: DEMENTIA ALZHEIMER'S TYPE
     Route: 048
  4. KALEORID LP [Concomitant]
     Route: 065
  5. COZAAR [Concomitant]
     Route: 065
  6. CLONIDINE [Concomitant]
     Route: 065
  7. COLCHICINE [Concomitant]
     Route: 065

REACTIONS (4)
  - WEIGHT DECREASED [None]
  - EATING DISORDER [None]
  - GENERAL PHYSICAL HEALTH DETERIORATION [None]
  - DECREASED APPETITE [None]
